FAERS Safety Report 8131645-3 (Version None)
Quarter: 2012Q1

REPORT INFORMATION
  Report Type: 
  Country: None (occurrence: None)
  Receive Date: 20120213
  Receipt Date: 20120206
  Transmission Date: 20120608
  Serious: Yes (Other)
  Sender: FDA-Public Use
  Company Number: US-PFIZER INC-2012032356

PATIENT
  Sex: Female
  Weight: 79.365 kg

DRUGS (4)
  1. CELEBREX [Suspect]
     Indication: PAIN
     Dosage: 200 MG, 1X/DAY
     Route: 048
     Dates: start: 20030101
  2. DILTIAZEM [Concomitant]
     Indication: HYPERTENSION
     Dosage: 120 MG, UNK
  3. LIPITOR [Concomitant]
     Indication: BLOOD CHOLESTEROL INCREASED
     Dosage: UNK
  4. RAMIPRIL [Concomitant]
     Indication: HYPERTENSION
     Dosage: UNK

REACTIONS (3)
  - HYPERTENSION [None]
  - DRUG INEFFECTIVE [None]
  - ARTHRITIS [None]
